FAERS Safety Report 8113058-3 (Version None)
Quarter: 2012Q1

REPORT INFORMATION
  Report Type: 
  Country: None (occurrence: None)
  Receive Date: 20120203
  Receipt Date: 20120131
  Transmission Date: 20120608
  Serious: Yes (Other)
  Sender: FDA-Public Use
  Company Number: US-GLAXOSMITHKLINE-A0964027A

PATIENT
  Age: 39 Year
  Sex: Female

DRUGS (8)
  1. ZONEGRAN [Concomitant]
  2. LAMICTAL [Concomitant]
  3. KLONOPIN [Concomitant]
  4. LAMICTAL XR [Suspect]
     Indication: EPILEPSY
     Dosage: 200MG TWICE PER DAY
     Route: 048
     Dates: start: 20080101
  5. VITAMIN D [Concomitant]
  6. LAMOTRIGINE [Suspect]
     Indication: EPILEPSY
     Dosage: 100MG PER DAY
     Route: 048
     Dates: start: 20080101, end: 20080101
  7. ESTROGENIC SUBSTANCE [Concomitant]
  8. VITAMIN B-12 [Concomitant]

REACTIONS (2)
  - CONVULSION [None]
  - ROAD TRAFFIC ACCIDENT [None]
